FAERS Safety Report 5065797-9 (Version None)
Quarter: 2006Q3

REPORT INFORMATION
  Report Type: 
  Country: None (occurrence: None)
  Receive Date: 20060731
  Receipt Date: 20060718
  Transmission Date: 20061208
  Serious: Yes (Death, Hospitalization)
  Sender: FDA-Public Use
  Company Number: 2006UW14725

PATIENT
  Age: 76 Year
  Sex: Female

DRUGS (6)
  1. CRESTOR [Suspect]
     Indication: HYPERCHOLESTEROLAEMIA
     Route: 048
     Dates: start: 20040101, end: 20060713
  2. ZETIA [Concomitant]
  3. COLESTID [Concomitant]
  4. SYNTHROID [Concomitant]
     Indication: HYPOTHYROIDISM
  5. HYDROCHLOROTHIAZIDE [Concomitant]
  6. ALEVE (CAPLET) [Concomitant]

REACTIONS (7)
  - DIALYSIS [None]
  - INTESTINAL INFARCTION [None]
  - MYOCARDIAL INFARCTION [None]
  - RENAL FAILURE ACUTE [None]
  - RETROPERITONEAL HAEMORRHAGE [None]
  - RHABDOMYOLYSIS [None]
  - SHOCK HAEMORRHAGIC [None]
